FAERS Safety Report 11696365 (Version 1)
Quarter: 2015Q4

REPORT INFORMATION
  Report Type: Spontaneous
  Country: JP (occurrence: JP)
  Receive Date: 20151104
  Receipt Date: 20151104
  Transmission Date: 20160304
  Serious: Yes (Other)
  Sender: FDA-Public Use
  Company Number: JP-PFIZER INC-2015368117

PATIENT
  Sex: Male

DRUGS (2)
  1. ZITHROMAC [Suspect]
     Active Substance: AZITHROMYCIN DIHYDRATE
     Indication: ORAL DISORDER
     Dosage: UNK, 1X/DAY
     Route: 048
     Dates: start: 20151024, end: 20151026
  2. CLARITH [Concomitant]
     Active Substance: CLARITHROMYCIN
     Indication: SINUSITIS
     Dosage: UNK
     Route: 048

REACTIONS (3)
  - Rhinalgia [Unknown]
  - Sinus headache [Unknown]
  - Empyema [Unknown]

NARRATIVE: CASE EVENT DATE: 20151026
